FAERS Safety Report 7946001-8 (Version None)
Quarter: 2011Q4

REPORT INFORMATION
  Report Type: 
  Country: None (occurrence: None)
  Receive Date: 20111129
  Receipt Date: 20111122
  Transmission Date: 20120403
  Serious: Yes (Other)
  Sender: FDA-Public Use
  Company Number: US-UCBSA-046337

PATIENT
  Sex: Female

DRUGS (2)
  1. VIMPAT [Suspect]
  2. ANTI CONVULSANTS [Concomitant]

REACTIONS (1)
  - ARRHYTHMIA [None]
